FAERS Safety Report 8807585 (Version 2)
Quarter: 2012Q4

REPORT INFORMATION
  Report Type: 
  Country: GB (occurrence: GB)
  Receive Date: 20120925
  Receipt Date: 20121004
  Transmission Date: 20130627
  Serious: Yes (Hospitalization)
  Sender: FDA-Public Use
  Company Number: GB-PFIZER INC-2012233049

PATIENT
  Age: 39 Year
  Sex: Male

DRUGS (1)
  1. CHAMPIX [Suspect]
     Indication: SMOKING CESSATION THERAPY
     Dosage: UNK, starter pack x1, then long oral
     Route: 048
     Dates: start: 20120621, end: 20120723

REACTIONS (2)
  - Psychotic disorder [Recovering/Resolving]
  - Drug interaction [Recovering/Resolving]
